FAERS Safety Report 7681467-2 (Version None)
Quarter: 2011Q3

REPORT INFORMATION
  Report Type: 
  Country: None (occurrence: None)
  Receive Date: 20110812
  Receipt Date: 20110804
  Transmission Date: 20111222
  Serious: Yes (Hospitalization)
  Sender: FDA-Public Use
  Company Number: PHHY2011SE70304

PATIENT
  Sex: Male

DRUGS (8)
  1. CALCICHEW-D3 [Concomitant]
  2. TRAVATAN [Concomitant]
  3. METOPROLOL TARTRATE [Concomitant]
  4. NITROMEX [Concomitant]
  5. PREDNISOLONE [Concomitant]
  6. ALENDRONATE SODIUM [Suspect]
     Dosage: 70 MG (WEEKLY DOSE)
     Route: 048
     Dates: start: 20110319, end: 20110416
  7. ENALAPRIL MALEATE [Concomitant]
  8. ASPIRIN [Concomitant]

REACTIONS (4)
  - LOSS OF CONSCIOUSNESS [None]
  - BALANCE DISORDER [None]
  - SYNCOPE [None]
  - VISION BLURRED [None]
